FAERS Safety Report 14713433 (Version 2)
Quarter: 2019Q1

REPORT INFORMATION
  Report Type: Spontaneous
  Country: US (occurrence: US)
  Receive Date: 20180404
  Receipt Date: 20190215
  Transmission Date: 20190417
  Serious: Yes (Other)
  Sender: FDA-Public Use
  Company Number: US-CIPLA LTD.-2017US17707

PATIENT

DRUGS (4)
  1. SERTRALINE [Suspect]
     Active Substance: SERTRALINE HYDROCHLORIDE
     Indication: DEPRESSION
     Dosage: 25 MILLIGRAM, QD FOR 7 DAYS
     Route: 048
     Dates: start: 20170830, end: 201709
  2. NAPROXEN. [Suspect]
     Active Substance: NAPROXEN
     Indication: TENDONITIS
     Dosage: UNK, FOR 9 TO 10 DAYS
     Route: 065
  3. PROPRANOLOL [Suspect]
     Active Substance: PROPRANOLOL HYDROCHLORIDE
     Indication: PALPITATIONS
     Dosage: 100 MILLIGRAM, BID
     Route: 048
  4. SERTRALINE [Suspect]
     Active Substance: SERTRALINE HYDROCHLORIDE
     Dosage: 2 DOSAGE FORM, PER DAY
     Route: 065

REACTIONS (16)
  - Dyspnoea [Recovered/Resolved]
  - Contusion [Unknown]
  - Sexual dysfunction [Not Recovered/Not Resolved]
  - Libido decreased [Not Recovered/Not Resolved]
  - Arthralgia [Unknown]
  - Anxiety [Not Recovered/Not Resolved]
  - Nausea [Recovering/Resolving]
  - Palpitations [Not Recovered/Not Resolved]
  - Coordination abnormal [Unknown]
  - Tremor [Not Recovered/Not Resolved]
  - Muscle twitching [Not Recovered/Not Resolved]
  - Chest pain [Unknown]
  - Musculoskeletal chest pain [Unknown]
  - Insomnia [Not Recovered/Not Resolved]
  - Sensory disturbance [Unknown]
  - Dyspepsia [Recovering/Resolving]

NARRATIVE: CASE EVENT DATE: 2017
